FAERS Safety Report 5730597-0 (Version None)
Quarter: 2008Q2

REPORT INFORMATION
  Report Type: 
  Country: None (occurrence: None)
  Receive Date: 20080507
  Receipt Date: 20080428
  Transmission Date: 20081010
  Serious: Yes (Hospitalization)
  Sender: FDA-Public Use
  Company Number: B0518499A

PATIENT
  Age: 60 Year
  Sex: Male

DRUGS (5)
  1. LAMICTAL [Suspect]
     Indication: EPILEPSY
     Route: 048
     Dates: start: 20080115, end: 20080331
  2. VIRAFERON [Suspect]
     Indication: HEPATITIS C
     Route: 065
     Dates: start: 20071113, end: 20080328
  3. RIBAVIRIN [Suspect]
     Indication: HEPATITIS C
     Route: 065
     Dates: start: 20071113, end: 20080328
  4. LAROXYL [Concomitant]
     Indication: DRUG USE FOR UNKNOWN INDICATION
     Route: 065
     Dates: start: 20071001
  5. DEXERYL (FRANCE) [Concomitant]
     Indication: DRY SKIN
     Dates: start: 20080101

REACTIONS (13)
  - ATROPHY OF TONGUE PAPILLAE [None]
  - ECZEMA [None]
  - ERYTHEMA [None]
  - FACE OEDEMA [None]
  - GLOSSODYNIA [None]
  - PALATAL DISORDER [None]
  - PARAESTHESIA ORAL [None]
  - PRURIGO [None]
  - RASH ERYTHEMATOUS [None]
  - RASH PAPULAR [None]
  - RASH PUSTULAR [None]
  - SEBORRHOEIC KERATOSIS [None]
  - SKIN PAPILLOMA [None]
